FAERS Safety Report 6204183-2 (Version None)
Quarter: 2009Q2

REPORT INFORMATION
  Report Type: 
  Country: None (occurrence: None)
  Receive Date: 20090526
  Receipt Date: 20090526
  Transmission Date: 20091009
  Serious: Yes (Death, Hospitalization)
  Sender: FDA-Public Use
  Company Number: None

PATIENT
  Sex: Female
  Weight: 66 kg

DRUGS (3)
  1. CYTARABINE [Suspect]
     Dosage: 1260 MG
     Dates: start: 20090504, end: 20090510
  2. DAUNORUBICIN HCL [Suspect]
     Dosage: 480 MG
     Dates: end: 20090506
  3. ETOPOSIDE [Suspect]
     Dosage: 540 MG
     Dates: end: 20090506

REACTIONS (5)
  - BRAIN HERNIATION [None]
  - GENERAL PHYSICAL HEALTH DETERIORATION [None]
  - HAEMORRHAGE INTRACRANIAL [None]
  - PLATELET COUNT DECREASED [None]
  - WHITE BLOOD CELL COUNT DECREASED [None]
